FAERS Safety Report 7684938-8 (Version None)
Quarter: 2011Q3

REPORT INFORMATION
  Report Type: 
  Country: None (occurrence: None)
  Receive Date: 20110816
  Receipt Date: 20110805
  Transmission Date: 20111222
  Serious: Yes (Hospitalization)
  Sender: FDA-Public Use
  Company Number: PHEH2011US00780

PATIENT
  Sex: Male

DRUGS (8)
  1. DOCUSATE SODIUM [Suspect]
     Dosage: 100 MG, UNK
  2. FERROUS SULFATE TAB [Suspect]
     Dosage: 325 MG, UNK
  3. PROPRANOLOL [Suspect]
     Dosage: 40 MG, UNK
  4. CLOZAPINE [Suspect]
     Dosage: 200 MG, TID
  5. ABILIFY [Suspect]
     Dosage: 30 MG
  6. CLOZAPINE [Suspect]
     Dosage: 200 MG
  7. CLOZAPINE [Suspect]
     Dosage: 25 MG, QD
  8. LAMOTRIGINE [Suspect]
     Dosage: 200 MG, UNK

REACTIONS (1)
  - AGGRESSION [None]
